FAERS Safety Report 8590857-5 (Version None)
Quarter: 2012Q3

REPORT INFORMATION
  Report Type: 
  Country: None (occurrence: None)
  Receive Date: 20120813
  Receipt Date: 20120730
  Transmission Date: 20120928
  Serious: Yes (Hospitalization)
  Sender: FDA-Public Use
  Company Number: JP-FRI-1000023166

PATIENT
  Age: 82 Year
  Sex: Female

DRUGS (3)
  1. RIZE [Concomitant]
  2. MEMANTINE HCL [Suspect]
     Indication: DEMENTIA ALZHEIMER'S TYPE
     Dosage: 5 MG
     Route: 048
     Dates: start: 20110804, end: 20110801
  3. ARICEPT [Concomitant]

REACTIONS (1)
  - RESPIRATORY FAILURE [None]
